FAERS Safety Report 20761267 (Version 2)
Quarter: 2022Q2

REPORT INFORMATION
  Report Type: Spontaneous
  Country: CH (occurrence: CH)
  Receive Date: 20220428
  Receipt Date: 20220505
  Transmission Date: 20220721
  Serious: Yes (Other)
  Sender: FDA-Public Use
  Company Number: CH-TEVA-2022-CH-2030178

PATIENT
  Age: 73 Year
  Sex: Female

DRUGS (3)
  1. CIPROFLOXACIN [Interacting]
     Active Substance: CIPROFLOXACIN
     Indication: Antibiotic therapy
     Dosage: 2 TIMES 400 MG
     Route: 065
  2. DULOXETINE [Interacting]
     Active Substance: DULOXETINE
     Indication: Product used for unknown indication
     Dosage: 60 MILLIGRAM DAILY;
     Route: 048
  3. TIGECYCLINE [Concomitant]
     Active Substance: TIGECYCLINE
     Indication: Antibiotic therapy
     Dosage: 2 TIMES 50MG
     Route: 042

REACTIONS (3)
  - Depressed level of consciousness [Recovered/Resolved]
  - Drug interaction [Unknown]
  - Contraindicated product administered [Unknown]
